FAERS Safety Report 10974209 (Version 1)
Quarter: 2015Q2

REPORT INFORMATION
  Report Type: Spontaneous
  Country: FR (occurrence: FR)
  Receive Date: 20150401
  Receipt Date: 20150401
  Transmission Date: 20150821
  Serious: Yes (Hospitalization)
  Sender: FDA-Public Use
  Company Number: FR-PFIZER INC-2015105231

PATIENT
  Age: 79 Year
  Sex: Female

DRUGS (5)
  1. LYRICA [Suspect]
     Active Substance: PREGABALIN
     Indication: BACK PAIN
     Dosage: FROM 50 MG DAILY TO 150 MG DAILY
     Route: 048
     Dates: start: 20150107, end: 20150121
  2. SERESTA [Suspect]
     Active Substance: OXAZEPAM
     Dosage: 10 MG, 1X/DAY
     Route: 048
     Dates: start: 20150107, end: 20150121
  3. TRIATEC [Concomitant]
     Active Substance: RAMIPRIL
     Dosage: 10 MG, DAILY
  4. LAMALINE [Suspect]
     Active Substance: ACETAMINOPHEN\CAFFEINE\OPIUM
     Indication: BACK PAIN
     Dosage: 2 DF TO 10 DF AS NEEDED
     Route: 048
     Dates: start: 20150107, end: 20150121
  5. SINEMET [Concomitant]
     Active Substance: CARBIDOPA\LEVODOPA
     Dosage: 1 DF (100/10), 4X/DAY

REACTIONS (6)
  - Disorientation [Recovered/Resolved]
  - Abnormal behaviour [Unknown]
  - Speech disorder [Recovered/Resolved]
  - Visual impairment [Unknown]
  - Abnormal dreams [Recovered/Resolved]
  - Hallucination, visual [Recovered/Resolved]

NARRATIVE: CASE EVENT DATE: 20150114
